FAERS Safety Report 22329876 (Version 1)
Quarter: 2023Q2

REPORT INFORMATION
  Report Type: Spontaneous
  Country: US (occurrence: None)
  Receive Date: 20230517
  Receipt Date: 20230517
  Transmission Date: 20230721
  Serious: No
  Sender: FDA-Public Use
  Company Number: US-ROCHE-3298346

PATIENT
  Sex: Female

DRUGS (1)
  1. ACTEMRA [Suspect]
     Active Substance: TOCILIZUMAB
     Indication: Rheumatoid arthritis
     Dosage: SINGLE DOSE VIAL,?STRENGTH: 200 MG/10 ML, 400 MG/20 ML
     Route: 042
     Dates: start: 202203

REACTIONS (1)
  - Pain [Unknown]
